FAERS Safety Report 9416495 (Version 1)
Quarter: 2013Q3

REPORT INFORMATION
  Report Type: Spontaneous
  Country: PT (occurrence: PT)
  Receive Date: 20130719
  Receipt Date: 20130719
  Transmission Date: 20140515
  Serious: Yes (Other)
  Sender: FDA-Public Use
  Company Number: 2013P1012027

PATIENT
  Age: 62 Year
  Sex: Male

DRUGS (2)
  1. LIDOCAINE [Suspect]
     Indication: PROCEDURAL PAIN
     Route: 013
  2. ROPIVACAINE [Concomitant]

REACTIONS (1)
  - Grand mal convulsion [None]
